FAERS Safety Report 4448092-8 (Version None)
Quarter: 2004Q3

REPORT INFORMATION
  Report Type: 
  Country: None (occurrence: None)
  Receive Date: 20040813
  Receipt Date: 20040514
  Transmission Date: 20050211
  Serious: Yes (Hospitalization)
  Sender: FDA-Public Use
  Company Number: S04-USA-02900-01

PATIENT
  Age: 86 Year
  Sex: Male
  Weight: 70.3075 kg

DRUGS (8)
  1. NAMENDA [Suspect]
     Indication: DEMENTIA ALZHEIMER'S TYPE
     Dosage: 5 MG QD PO
     Route: 048
     Dates: start: 20040325, end: 20040331
  2. NAMENDA [Suspect]
     Indication: DEMENTIA ALZHEIMER'S TYPE
     Dosage: 10 MG QD PO
     Route: 048
     Dates: start: 20040401, end: 20040407
  3. NAMENDA [Suspect]
     Indication: DEMENTIA ALZHEIMER'S TYPE
     Dosage: 15 MG QD PO
     Route: 048
     Dates: start: 20040408, end: 20040414
  4. NAMENDA [Suspect]
     Indication: DEMENTIA ALZHEIMER'S TYPE
     Dosage: 10 MG BID PO
     Route: 048
     Dates: start: 20040415, end: 20040419
  5. ATIVAN [Suspect]
     Indication: AGITATION
     Dates: start: 20040325, end: 20040419
  6. ARICEPT [Concomitant]
  7. SEROQUEL [Concomitant]
  8. LISINOPRIL [Concomitant]

REACTIONS (2)
  - AGGRESSION [None]
  - MENTAL STATUS CHANGES [None]
